FAERS Safety Report 7540170-X (Version None)
Quarter: 2011Q2

REPORT INFORMATION
  Report Type: 
  Country: None (occurrence: None)
  Receive Date: 20110610
  Receipt Date: 20110527
  Transmission Date: 20111010
  Serious: Yes (Other)
  Sender: FDA-Public Use
  Company Number: US-JNJFOC-20110512895

PATIENT
  Sex: Female
  Weight: 70.31 kg

DRUGS (2)
  1. REMICADE [Suspect]
     Indication: CROHN'S DISEASE
     Route: 042
     Dates: start: 20100601
  2. IMURAN [Concomitant]
     Indication: CROHN'S DISEASE

REACTIONS (2)
  - RECTAL HAEMORRHAGE [None]
  - MENORRHAGIA [None]
